FAERS Safety Report 16468207 (Version 1)
Quarter: 2019Q2

REPORT INFORMATION
  Report Type: Report from Study
  Country: US (occurrence: US)
  Receive Date: 20190624
  Receipt Date: 20190624
  Transmission Date: 20190711
  Serious: Yes (Other)
  Sender: FDA-Public Use
  Company Number: PHHY2016US099372

PATIENT
  Age: 30 Year
  Sex: Male

DRUGS (1)
  1. GILENYA [Suspect]
     Active Substance: FINGOLIMOD HYDROCHLORIDE
     Indication: MULTIPLE SCLEROSIS
     Dosage: UNK UNK, QD
     Route: 048

REACTIONS (11)
  - Acrochordon [Recovered/Resolved]
  - White blood cell count decreased [Unknown]
  - Lymphocyte count decreased [Unknown]
  - Lipoma [Recovered/Resolved]
  - Food allergy [Unknown]
  - Melanocytic naevus [Recovered/Resolved]
  - Inguinal hernia [Recovered/Resolved]
  - Blood pressure systolic increased [Recovered/Resolved]
  - Vision blurred [Recovered/Resolved]
  - Oropharyngeal pain [Recovered/Resolved]
  - Upper respiratory tract infection [Recovered/Resolved]

NARRATIVE: CASE EVENT DATE: 20140927
